FAERS Safety Report 7348862-2 (Version None)
Quarter: 2011Q1

REPORT INFORMATION
  Report Type: 
  Country: None (occurrence: None)
  Receive Date: 20110314
  Receipt Date: 20110228
  Transmission Date: 20110831
  Serious: Yes (Other)
  Sender: FDA-Public Use
  Company Number: US-SANOFI-AVENTIS-2011SA013067

PATIENT
  Age: 69 Year
  Sex: Male

DRUGS (5)
  1. WELLBUTRIN [Concomitant]
  2. MULTAQ [Suspect]
     Indication: CARDIOVERSION
     Route: 048
     Dates: start: 20100319
  3. VALSARTAN [Concomitant]
  4. ASPIRIN [Concomitant]
  5. MULTAQ [Suspect]
     Indication: ATRIAL FIBRILLATION
     Route: 048
     Dates: start: 20100319

REACTIONS (2)
  - CHILLBLAINS [None]
  - SKIN DISCOLOURATION [None]
